FAERS Safety Report 5381988-1 (Version None)
Quarter: 2007Q3

REPORT INFORMATION
  Report Type: 
  Country: None (occurrence: None)
  Receive Date: 20070709
  Receipt Date: 20070627
  Transmission Date: 20080115
  Serious: Yes (Life-Threatening)
  Sender: FDA-Public Use
  Company Number: B0474639A

PATIENT
  Age: 79 Year
  Sex: Male
  Weight: 102 kg

DRUGS (6)
  1. AVANDIA [Suspect]
     Dosage: 4MG TWICE PER DAY
     Route: 065
     Dates: start: 20060719, end: 20070522
  2. DIAMICRON [Concomitant]
     Dosage: 80G TWICE PER DAY
     Route: 065
  3. ZOCOR [Concomitant]
     Dosage: 80G UNKNOWN
     Route: 065
  4. TENORMIN [Concomitant]
     Dosage: 50G UNKNOWN
     Route: 065
  5. LASIX [Concomitant]
     Dosage: 500MG TWICE PER DAY
     Route: 065
  6. DARBEPOETIN ALFA [Concomitant]
     Dosage: 40MCG UNKNOWN

REACTIONS (24)
  - ANION GAP INCREASED [None]
  - BLOOD ALKALINE PHOSPHATASE INCREASED [None]
  - BLOOD BICARBONATE INCREASED [None]
  - BLOOD CHOLESTEROL DECREASED [None]
  - BLOOD CREATININE INCREASED [None]
  - BLOOD GLUCOSE INCREASED [None]
  - BLOOD LACTATE DEHYDROGENASE INCREASED [None]
  - BLOOD TRIGLYCERIDES INCREASED [None]
  - BLOOD UREA INCREASED [None]
  - BLOOD URIC ACID INCREASED [None]
  - CARDIOMYOPATHY [None]
  - DYSPNOEA [None]
  - GLOBULINS INCREASED [None]
  - GLOMERULAR FILTRATION RATE DECREASED [None]
  - GLYCOSYLATED HAEMOGLOBIN INCREASED [None]
  - HAEMATOCRIT DECREASED [None]
  - HAEMOGLOBIN DECREASED [None]
  - IRON BINDING CAPACITY TOTAL INCREASED [None]
  - MEAN CELL VOLUME INCREASED [None]
  - OEDEMA PERIPHERAL [None]
  - PROTEIN TOTAL INCREASED [None]
  - RED BLOOD CELL COUNT DECREASED [None]
  - TRANSFERRIN SATURATION INCREASED [None]
  - WEIGHT INCREASED [None]
